FAERS Safety Report 11363110 (Version 1)
Quarter: 2015Q3

REPORT INFORMATION
  Report Type: Spontaneous
  Country: DE (occurrence: None)
  Receive Date: 20150807
  Receipt Date: 20150807
  Transmission Date: 20151125
  Serious: Yes (Life-Threatening)
  Sender: FDA-Public Use
  Company Number: DE-AGG-07-2015-0603

PATIENT
  Age: 73 Year
  Sex: Male
  Weight: 87 kg

DRUGS (12)
  1. ALLOPURINOL. [Concomitant]
     Active Substance: ALLOPURINOL
  2. ASA [Concomitant]
     Active Substance: ASPIRIN
  3. ACE-INHIBITOR [Concomitant]
     Active Substance: UNSPECIFIED INGREDIENT
  4. DIURETICS [Concomitant]
     Active Substance: UNSPECIFIED INGREDIENT
  5. PROTON PUMP INHIBITOR [Concomitant]
     Active Substance: UNSPECIFIED INGREDIENT
  6. TIROFIBAN HCL [Suspect]
     Active Substance: TIROFIBAN HYDROCHLORIDE
     Indication: ANTIPLATELET THERAPY
     Dosage: 1 X 14 ML EVERY 1 HOUR(S) INTRAVENOUS
     Route: 042
     Dates: start: 20070126
  7. TIROFIBAN HCL [Suspect]
     Active Substance: TIROFIBAN HYDROCHLORIDE
     Indication: ANTIPLATELET THERAPY
     Dosage: 1 X 10 ML EVERY 1 HOUR(S) INTRAVENOUS
     Route: 042
     Dates: start: 20070126
  8. CLOPIDOGREL [Concomitant]
     Active Substance: CLOPIDOGREL BISULFATE
  9. STATIN [Concomitant]
     Active Substance: UNSPECIFIED INGREDIENT
  10. TIROFIBAN HCL [Suspect]
     Active Substance: TIROFIBAN HYDROCHLORIDE
     Indication: ANTIPLATELET THERAPY
     Dosage: 1 X 9 ML EVERY 1 DAY(S)  INTRAVENOUS B
     Route: 040
     Dates: start: 20070126, end: 20070126
  11. TIROFIBAN HCL [Suspect]
     Active Substance: TIROFIBAN HYDROCHLORIDE
     Indication: ANTIPLATELET THERAPY
     Dosage: 1 X 7.5 ML EVERY 1 DAY(S) INTRAVENOUS
     Route: 042
     Dates: start: 20070126, end: 20070126
  12. BETA BLOCKER [Concomitant]
     Active Substance: UNSPECIFIED INGREDIENT

REACTIONS (1)
  - Myocardial infarction [None]

NARRATIVE: CASE EVENT DATE: 20070130
